FAERS Safety Report 6583336-8 (Version None)
Quarter: 2010Q1

REPORT INFORMATION
  Report Type: 
  Country: None (occurrence: None)
  Receive Date: 20100216
  Receipt Date: 20100204
  Transmission Date: 20100710
  Serious: Yes (Hospitalization)
  Sender: FDA-Public Use
  Company Number: IT-GENENTECH-296236

PATIENT
  Sex: Male

DRUGS (12)
  1. MABTHERA [Suspect]
     Indication: NON-HODGKIN'S LYMPHOMA
     Dosage: 600 MG, UNK
     Route: 042
     Dates: start: 20090819, end: 20090909
  2. DOXORUBICIN HCL [Suspect]
     Indication: NON-HODGKIN'S LYMPHOMA
     Dosage: 125 MG, UNK
     Route: 042
     Dates: start: 20090812, end: 20090910
  3. VINCRISTINE [Suspect]
     Indication: NON-HODGKIN'S LYMPHOMA
     Dosage: 2 MG, UNK
     Route: 042
     Dates: start: 20090812, end: 20090910
  4. TACHIPIRINA [Concomitant]
     Indication: DRUG USE FOR UNKNOWN INDICATION
     Dosage: 1 G, UNK
     Route: 048
     Dates: start: 20090819, end: 20090819
  5. TRIMETON [Concomitant]
     Indication: DRUG USE FOR UNKNOWN INDICATION
     Dosage: 10 MG, UNK
     Route: 042
     Dates: start: 20090819, end: 20090819
  6. ENDOXAN [Concomitant]
     Indication: DRUG USE FOR UNKNOWN INDICATION
     Dosage: DRUG NAME: CYCLOPHOSPHAMIDE/ENDOXAN BAXTER.
     Route: 042
     Dates: start: 20090812, end: 20090910
  7. UROMITEXAN [Concomitant]
     Indication: DRUG USE FOR UNKNOWN INDICATION
     Dosage: UNK
     Route: 042
     Dates: start: 20090812
  8. DELTACORTENE [Concomitant]
     Indication: DRUG USE FOR UNKNOWN INDICATION
     Dosage: UNK
     Route: 048
     Dates: start: 20090812
  9. ASACOL [Concomitant]
     Indication: DRUG USE FOR UNKNOWN INDICATION
     Dosage: 800 MG, UNK
     Route: 048
  10. BACTRIM [Concomitant]
     Indication: DRUG USE FOR UNKNOWN INDICATION
     Dosage: 1920 MG, UNK
     Route: 048
  11. ZYLORIC [Concomitant]
     Indication: DRUG USE FOR UNKNOWN INDICATION
     Dosage: 300 MG, UNK
     Route: 048
  12. NEULASTA [Concomitant]
     Indication: DRUG USE FOR UNKNOWN INDICATION
     Dosage: 6 MG, UNK
     Route: 058

REACTIONS (4)
  - DYSPNOEA [None]
  - FEBRILE NEUTROPENIA [None]
  - HERPES VIRUS INFECTION [None]
  - STOMATITIS [None]
